FAERS Safety Report 5346936-9 (Version None)
Quarter: 2007Q2

REPORT INFORMATION
  Report Type: 
  Country: None (occurrence: None)
  Receive Date: 20070430
  Receipt Date: 20070221
  Transmission Date: 20071010
  Serious: No
  Sender: FDA-Public Use
  Company Number: 261088

PATIENT
  Age: 55 Year
  Sex: Female

DRUGS (4)
  1. LEVEMIR [Suspect]
     Indication: INSULIN-REQUIRING TYPE II DIABETES MELLITUS
     Dosage: SEE IMAGE
     Route: 058
     Dates: start: 20070129, end: 20070215
  2. LEVEMIR [Suspect]
     Indication: INSULIN-REQUIRING TYPE II DIABETES MELLITUS
     Dosage: SEE IMAGE
     Route: 058
     Dates: start: 20070216
  3. ZESTRIL [Concomitant]
  4. ACTOS /01460201/ (PIOGLITAZONE) [Concomitant]

REACTIONS (3)
  - ANAEMIA [None]
  - OEDEMA PERIPHERAL [None]
  - SWELLING FACE [None]
